FAERS Safety Report 6633450-3 (Version None)
Quarter: 2010Q1

REPORT INFORMATION
  Report Type: 
  Country: None (occurrence: None)
  Receive Date: 20100312
  Receipt Date: 20090331
  Transmission Date: 20100710
  Serious: No
  Sender: FDA-Public Use
  Company Number: US-ABBOTT-09P-163-0566069-00

PATIENT
  Sex: Female

DRUGS (3)
  1. ERYTHROMYCIN [Suspect]
     Indication: TOOTH DISORDER
  2. ERYTHROMYCIN [Suspect]
     Indication: PROPHYLAXIS
  3. ERYTHROMYCIN [Suspect]
     Indication: DRUG USE FOR UNKNOWN INDICATION
     Route: 047

REACTIONS (3)
  - RASH [None]
  - SKIN DISCOLOURATION [None]
  - URTICARIA [None]
